FAERS Safety Report 5567368-4 (Version None)
Quarter: 2007Q4

REPORT INFORMATION
  Report Type: 
  Country: None (occurrence: None)
  Receive Date: 20071214
  Receipt Date: 20071206
  Transmission Date: 20080405
  Serious: Yes (Other)
  Sender: FDA-Public Use
  Company Number: 2007SP022806

PATIENT
  Age: 47 Year
  Sex: Male
  Weight: 84 kg

DRUGS (5)
  1. TEMODAL [Suspect]
     Indication: GLIOBLASTOMA
     Dosage: 75 MG/M2; QD; PO
     Route: 048
     Dates: start: 20070914, end: 20071015
  2. INEXIUM (CON.) [Concomitant]
  3. SOLUPRED (CON.) [Concomitant]
  4. PREVISCAN (CON.) [Concomitant]
  5. TRILEPTAL (CON.) [Concomitant]

REACTIONS (3)
  - CHOLESTASIS [None]
  - CYTOLYTIC HEPATITIS [None]
  - HEPATOTOXICITY [None]
